FAERS Safety Report 4528614-9 (Version None)
Quarter: 2004Q4

REPORT INFORMATION
  Report Type: 
  Country: None (occurrence: None)
  Receive Date: 20041216
  Receipt Date: 20041207
  Transmission Date: 20050328
  Serious: Yes (Hospitalization)
  Sender: FDA-Public Use
  Company Number: DE-JNJFOC-20041202134

PATIENT
  Sex: Female

DRUGS (4)
  1. ACETAMINOPHEN AND TRAMADOL HCL [Suspect]
     Indication: DRUG USE FOR UNKNOWN INDICATION
     Route: 049
  2. ALOE VERA [Concomitant]
     Indication: DRUG USE FOR UNKNOWN INDICATION
     Route: 065
  3. ASPIRIN [Concomitant]
     Route: 049
  4. ASPIRIN [Concomitant]
     Indication: HEADACHE
     Route: 049

REACTIONS (16)
  - ANXIETY [None]
  - APLASTIC ANAEMIA [None]
  - BONE MARROW DEPRESSION [None]
  - CHILLS [None]
  - CHOLELITHIASIS [None]
  - DYSPHAGIA [None]
  - DYSPNOEA EXERTIONAL [None]
  - FATIGUE [None]
  - GENERAL PHYSICAL HEALTH DETERIORATION [None]
  - HEADACHE [None]
  - ORAL PAIN [None]
  - OSTEOPENIA [None]
  - PANCYTOPENIA [None]
  - PETECHIAE [None]
  - PYREXIA [None]
  - TACHYCARDIA [None]
